FAERS Safety Report 19811498 (Version 1)
Quarter: 2021Q3

REPORT INFORMATION
  Report Type: Spontaneous
  Country: IL (occurrence: IL)
  Receive Date: 20210910
  Receipt Date: 20210910
  Transmission Date: 20211014
  Serious: Yes (Hospitalization, Other)
  Sender: FDA-Public Use
  Company Number: IL-BRISTOL-MYERS SQUIBB COMPANY-BMS-2021-090407

PATIENT
  Age: 72 Year
  Sex: Male

DRUGS (1)
  1. ELIQUIS [Suspect]
     Active Substance: APIXABAN
     Indication: CEREBROVASCULAR ACCIDENT PROPHYLAXIS
     Dosage: UNK
     Route: 065
     Dates: start: 20190225

REACTIONS (5)
  - Dyspnoea [Unknown]
  - Abdominal pain upper [Unknown]
  - Hepatic haematoma [Unknown]
  - Loss of consciousness [Unknown]
  - Ischaemia [Unknown]
